FAERS Safety Report 7133238-3 (Version None)
Quarter: 2010Q4

REPORT INFORMATION
  Report Type: 
  Country: None (occurrence: None)
  Receive Date: 20101117
  Receipt Date: 20101021
  Transmission Date: 20110411
  Serious: No
  Sender: FDA-Public Use
  Company Number: 2010-00915

PATIENT
  Age: 49 Year
  Sex: Female
  Weight: 58.9676 kg

DRUGS (3)
  1. ZICAM COLD REMEDY GEL SWABS [Suspect]
     Dosage: SPORADIC, 6YRS AGO
     Dates: end: 20100801
  2. ZICAM COLD REMEDY RAPIDMELTS [Suspect]
     Dosage: SPORADIC
     Dates: end: 20100801
  3. ZICAM COLD REMEDY RAPIDMELTS WITH VITAMIN C [Suspect]
     Dosage: SPORADIC
     Dates: end: 20100801

REACTIONS (2)
  - AGEUSIA [None]
  - ANOSMIA [None]
